FAERS Safety Report 15997344 (Version 2)
Quarter: 2019Q2

REPORT INFORMATION
  Report Type: Report from Study
  Country: CA (occurrence: CA)
  Receive Date: 20190222
  Receipt Date: 20190426
  Transmission Date: 20190711
  Serious: Yes (Hospitalization)
  Sender: FDA-Public Use
  Company Number: CA-TAKEDA-2019TUS007815

PATIENT
  Age: 16 Year
  Sex: Male

DRUGS (4)
  1. VEDOLIZUMAB [Suspect]
     Active Substance: VEDOLIZUMAB
     Indication: COLITIS ULCERATIVE
     Dosage: 300 MILLIGRAM
     Route: 042
     Dates: start: 20181027
  2. PREDNISONE. [Concomitant]
     Active Substance: PREDNISONE
     Indication: DRUG DEPENDENCE
     Dosage: UNK
     Dates: start: 20170301
  3. PENTASA [Concomitant]
     Active Substance: MESALAMINE
     Dosage: 4 GRAM, QD
     Dates: start: 20180306, end: 20190201
  4. PREDNISONE. [Concomitant]
     Active Substance: PREDNISONE
     Dosage: UNK
     Dates: start: 201809

REACTIONS (2)
  - Product use issue [Unknown]
  - Hospitalisation [Unknown]

NARRATIVE: CASE EVENT DATE: 20181027
